FAERS Safety Report 24073336 (Version 4)
Quarter: 2024Q3

REPORT INFORMATION
  Report Type: Spontaneous
  Country: ES (occurrence: ES)
  Receive Date: 20240710
  Receipt Date: 20240904
  Transmission Date: 20241016
  Serious: Yes (Life-Threatening, Hospitalization, Other)
  Sender: NOVARTIS
  Company Number: ES-SA-2024SA192182

PATIENT
  Age: 5 Month
  Sex: Male

DRUGS (7)
  1. CYCLOSPORINE [Suspect]
     Active Substance: CYCLOSPORINE
     Indication: Immunosuppressant drug therapy
     Dosage: UNK
     Route: 065
  2. MERCAPTOPURINE [Suspect]
     Active Substance: MERCAPTOPURINE
     Indication: Immunosuppressant drug therapy
     Dosage: UNK
     Route: 065
  3. MERCAPTOPURINE [Suspect]
     Active Substance: MERCAPTOPURINE
     Dosage: DOSE REDUCTION
     Route: 065
  4. FLUDARABINE PHOSPHATE [Suspect]
     Active Substance: FLUDARABINE PHOSPHATE
     Indication: Combined immunodeficiency
     Dosage: UNK
     Route: 065
  5. FLUDARABINE PHOSPHATE [Suspect]
     Active Substance: FLUDARABINE PHOSPHATE
     Indication: Bone marrow conditioning regimen
  6. METHYLPREDNISOLONE [Suspect]
     Active Substance: METHYLPREDNISOLONE
     Indication: Immunosuppressant drug therapy
     Dosage: DOSE REDUCTION
     Route: 065
  7. METHYLPREDNISOLONE [Suspect]
     Active Substance: METHYLPREDNISOLONE
     Indication: Immunosuppression

REACTIONS (4)
  - Septic shock [Unknown]
  - Acute respiratory distress syndrome [Unknown]
  - Immunosuppressant drug level increased [Unknown]
  - Diarrhoea [Recovered/Resolved]
